FAERS Safety Report 6955013-2 (Version None)
Quarter: 2010Q3

REPORT INFORMATION
  Report Type: 
  Country: None (occurrence: None)
  Receive Date: 20100825
  Receipt Date: 20100825
  Transmission Date: 20110219
  Serious: Yes (Other)
  Sender: FDA-Public Use
  Company Number: 20100171

PATIENT
  Age: 62 Year
  Sex: Female

DRUGS (2)
  1. BETAMETHASONE SODIUM PHOSPHATE AND BETAMETHASONE ACETATE INJ. SUSP. US [Suspect]
     Indication: TENDONITIS
     Dosage: INJECTION NOS, 3 MG (BASE) ML; 3 MG/ML
     Dates: start: 20100329
  2. LIDOCAINE [Concomitant]

REACTIONS (2)
  - DIZZINESS [None]
  - HYPOTENSION [None]
